FAERS Safety Report 7381286-0 (Version None)
Quarter: 2011Q1

REPORT INFORMATION
  Report Type: 
  Country: None (occurrence: None)
  Receive Date: 20110321
  Receipt Date: 20110308
  Transmission Date: 20110831
  Serious: Yes (Hospitalization)
  Sender: FDA-Public Use
  Company Number: UTC-005609

PATIENT
  Age: 46 Year
  Sex: Male

DRUGS (2)
  1. REMODULIN [Suspect]
     Indication: PULMONARY ARTERIAL HYPERTENSION
     Dosage: 12.96 UG/KG (0.009 UG/KG,1 IN 1 MIN),INTRAVENOUS
     Route: 042
  2. DIURETICS (DIURETICS) [Concomitant]

REACTIONS (1)
  - ASCITES [None]
